FAERS Safety Report 11878926 (Version 2)
Quarter: 2016Q1

REPORT INFORMATION
  Report Type: Spontaneous
  Country: US (occurrence: US)
  Receive Date: 20151230
  Receipt Date: 20160211
  Transmission Date: 20160526
  Serious: Yes (Other)
  Sender: FDA-Public Use
  Company Number: US-GLAXOSMITHKLINE-US2015GSK181323

PATIENT

DRUGS (18)
  1. PROCHLORPERAZINE. [Suspect]
     Active Substance: PROCHLORPERAZINE
  2. LUNESTA [Suspect]
     Active Substance: ESZOPICLONE
  3. TEGRETOL [Suspect]
     Active Substance: CARBAMAZEPINE
     Dosage: 400 MG, QD
  4. REGLAN [Suspect]
     Active Substance: METOCLOPRAMIDE HYDROCHLORIDE
  5. GABAPENTIN. [Suspect]
     Active Substance: GABAPENTIN
  6. PHENYTOIN. [Suspect]
     Active Substance: PHENYTOIN
  7. NEURONTIN [Suspect]
     Active Substance: GABAPENTIN
  8. SUMATRIPTAN. [Suspect]
     Active Substance: SUMATRIPTAN
  9. TOPIRAMATE. [Suspect]
     Active Substance: TOPIRAMATE
  10. CARBAMAZEPINE. [Suspect]
     Active Substance: CARBAMAZEPINE
  11. CLINDAMYCIN [Suspect]
     Active Substance: CLINDAMYCIN\CLINDAMYCIN PHOSPHATE
  12. FLUOXETINE [Suspect]
     Active Substance: FLUOXETINE HYDROCHLORIDE
  13. SUDAFED [Suspect]
     Active Substance: PSEUDOEPHEDRINE HYDROCHLORIDE
  14. TOPAMAX [Suspect]
     Active Substance: TOPIRAMATE
  15. WELLBUTRIN [Suspect]
     Active Substance: BUPROPION HYDROCHLORIDE
  16. IMITREX [Suspect]
     Active Substance: SUMATRIPTAN SUCCINATE
  17. BUPROPION. [Suspect]
     Active Substance: BUPROPION
  18. AMITRIPTYLINE [Suspect]
     Active Substance: AMITRIPTYLINE

REACTIONS (14)
  - Drug hypersensitivity [Unknown]
  - Blood disorder [Unknown]
  - Off label use [Unknown]
  - Crohn^s disease [Unknown]
  - Chest pain [Unknown]
  - Anxiety [Unknown]
  - Neuropathy peripheral [Unknown]
  - Arrhythmia [Unknown]
  - Pain in jaw [Unknown]
  - Pericarditis [Unknown]
  - Joint swelling [Unknown]
  - Seizure [Unknown]
  - Suicidal ideation [Unknown]
  - Endocarditis [Unknown]
